FAERS Safety Report 19705718 (Version 2)
Quarter: 2021Q3

REPORT INFORMATION
  Report Type: Spontaneous
  Country: CA (occurrence: CA)
  Receive Date: 20210817
  Receipt Date: 20210917
  Transmission Date: 20211014
  Serious: Yes (Other)
  Sender: FDA-Public Use
  Company Number: CA-BEH-2021134963

PATIENT
  Sex: Male

DRUGS (7)
  1. PRIVIGEN [Suspect]
     Active Substance: HUMAN IMMUNOGLOBULIN G
     Dosage: 1.99 MILLILITER, SINGLE
     Route: 042
     Dates: start: 20201218, end: 20201218
  2. PRIVIGEN [Suspect]
     Active Substance: HUMAN IMMUNOGLOBULIN G
     Dosage: 10 MILLILITER, SINGLE
     Route: 042
     Dates: start: 20201217, end: 20201218
  3. TYLENOL [Concomitant]
     Active Substance: ACETAMINOPHEN
     Dosage: 100 MILLIGRAM
     Route: 048
     Dates: start: 20201217
  4. TYLENOL [Concomitant]
     Active Substance: ACETAMINOPHEN
     Dosage: 115 MILLIGRAM
     Route: 048
     Dates: start: 20201218
  5. PRIVIGEN [Suspect]
     Active Substance: HUMAN IMMUNOGLOBULIN G
     Dosage: 25 MILLILITER, SINGLE
     Route: 042
     Dates: start: 20201217, end: 20201217
  6. CETIRIZINE [Concomitant]
     Active Substance: CETIRIZINE HYDROCHLORIDE
     Dosage: 2 MILLIGRAM
     Route: 048
     Dates: start: 20201218
  7. PRIVIGEN [Suspect]
     Active Substance: HUMAN IMMUNOGLOBULIN G
     Dosage: 9 MILLILITER, SINGLE
     Route: 042
     Dates: start: 20201218, end: 20201218

REACTIONS (8)
  - Respiratory rate decreased [Unknown]
  - Cold sweat [Unknown]
  - Heart rate decreased [Unknown]
  - Irritability [Unknown]
  - Hyperhidrosis [Not Recovered/Not Resolved]
  - Blood pressure decreased [Unknown]
  - Body temperature decreased [Not Recovered/Not Resolved]
  - Hypothermia [Not Recovered/Not Resolved]

NARRATIVE: CASE EVENT DATE: 20201217
